FAERS Safety Report 24103749 (Version 1)
Quarter: 2024Q3

REPORT INFORMATION
  Report Type: Report from Study
  Country: TW (occurrence: None)
  Receive Date: 20240717
  Receipt Date: 20240717
  Transmission Date: 20241016
  Serious: Yes (Disabling)
  Sender: ASTRAZENECA
  Company Number: 2019SF40469

PATIENT
  Age: 53 Year
  Sex: Female

DRUGS (1)
  1. TAGRISSO [Suspect]
     Active Substance: OSIMERTINIB
     Indication: Lung neoplasm malignant
     Route: 048
     Dates: start: 20190420, end: 20190928

REACTIONS (3)
  - Blindness unilateral [Unknown]
  - Lagophthalmos [Unknown]
  - Drug ineffective [Unknown]

NARRATIVE: CASE EVENT DATE: 20190101
